FAERS Safety Report 5047378-6 (Version None)
Quarter: 2006Q3

REPORT INFORMATION
  Report Type: 
  Country: None (occurrence: None)
  Receive Date: 20060710
  Receipt Date: 20060710
  Transmission Date: 20061208
  Serious: Yes (Life-Threatening)
  Sender: FDA-Public Use
  Company Number: None

PATIENT
  Age: 13 Year
  Sex: Male
  Weight: 78.8 kg

DRUGS (2)
  1. ANTI-THYMOCYTE GLOBULIN-RABBIT 25 MG SANGSTAT [Suspect]
     Indication: OBESITY
     Dosage: 100 MG ONE DOSE IV DRIP
     Route: 041
     Dates: start: 20060613, end: 20060613
  2. ANTI-THYMOCYTE GLOBULIN-RABBIT 25 MG SANGSTAT [Suspect]
     Indication: RENAL TRANSPLANT
     Dosage: 100 MG ONE DOSE IV DRIP
     Route: 041
     Dates: start: 20060613, end: 20060613

REACTIONS (5)
  - INFUSION RELATED REACTION [None]
  - NO THERAPEUTIC RESPONSE [None]
  - OXYGEN SATURATION DECREASED [None]
  - PROCEDURAL COMPLICATION [None]
  - PROCEDURAL HYPOTENSION [None]
